FAERS Safety Report 5455494-X (Version None)
Quarter: 2007Q3

REPORT INFORMATION
  Report Type: 
  Country: None (occurrence: None)
  Receive Date: 20070918
  Receipt Date: 20070330
  Transmission Date: 20080115
  Serious: Yes (Other)
  Sender: FDA-Public Use
  Company Number: US-ASTRAZENECA-2006UW21366

PATIENT
  Age: 42 Year
  Sex: Male
  Weight: 134.1 kg

DRUGS (6)
  1. SEROQUEL [Suspect]
     Indication: SCHIZOPHRENIA
     Dosage: ? - 300 MG
     Route: 048
     Dates: start: 20031001, end: 20060501
  2. SEROQUEL [Suspect]
     Indication: INSOMNIA
     Dosage: ? - 300 MG
     Route: 048
     Dates: start: 20031001, end: 20060501
  3. ABILIFY [Concomitant]
  4. TRILAFON [Concomitant]
  5. ARICEPT [Concomitant]
  6. COCAINE [Concomitant]
     Dates: start: 19990101, end: 20060101

REACTIONS (2)
  - TARDIVE DYSKINESIA [None]
  - TYPE 2 DIABETES MELLITUS [None]
